FAERS Safety Report 7366450-9 (Version None)
Quarter: 2011Q1

REPORT INFORMATION
  Report Type: 
  Country: None (occurrence: None)
  Receive Date: 20110322
  Receipt Date: 20110308
  Transmission Date: 20110831
  Serious: Yes (Hospitalization)
  Sender: FDA-Public Use
  Company Number: US-JNJFOC-20100906822

PATIENT
  Sex: Male
  Weight: 25.4 kg

DRUGS (4)
  1. INFLIXIMAB, RECOMBINANT [Suspect]
     Dosage: TOTAL 20 DOSES
     Route: 042
  2. PREDNISONE [Concomitant]
  3. FLAGYL [Concomitant]
  4. INFLIXIMAB, RECOMBINANT [Suspect]
     Indication: ANORECTAL DISORDER
     Route: 042

REACTIONS (3)
  - CROHN'S DISEASE [None]
  - CONDITION AGGRAVATED [None]
  - MALNUTRITION [None]
